FAERS Safety Report 14730428 (Version 1)
Quarter: 2018Q2

REPORT INFORMATION
  Report Type: Spontaneous
  Country: US (occurrence: US)
  Receive Date: 20180406
  Receipt Date: 20180406
  Transmission Date: 20180711
  Serious: Yes (Other)
  Sender: FDA-Public Use
  Company Number: US-FRESENIUS KABI-FK201804105

PATIENT
  Age: 58 Year
  Sex: Male

DRUGS (3)
  1. FLUOROURACIL. [Concomitant]
     Active Substance: FLUOROURACIL
     Indication: ADENOCARCINOMA
     Route: 065
  2. OXALIPLATIN (MANUFACTURER UNKNOWN) [Suspect]
     Active Substance: OXALIPLATIN
     Indication: ADENOCARCINOMA
     Route: 065
  3. FOLINIC ACID [Concomitant]
     Active Substance: LEUCOVORIN
     Indication: ADENOCARCINOMA
     Route: 065

REACTIONS (1)
  - Carcinoembryonic antigen increased [Recovering/Resolving]
